FAERS Safety Report 7600037-5 (Version None)
Quarter: 2011Q3

REPORT INFORMATION
  Report Type: 
  Country: None (occurrence: None)
  Receive Date: 20110711
  Receipt Date: 20110706
  Transmission Date: 20111222
  Serious: Yes (Disabling)
  Sender: FDA-Public Use
  Company Number: JP-SANOFI-AVENTIS-2011SA038199

PATIENT
  Age: 34 Year
  Sex: Female
  Weight: 50 kg

DRUGS (15)
  1. MAGNESIUM SULFATE [Concomitant]
     Indication: PROPHYLAXIS
     Dosage: 1G/H
     Route: 042
     Dates: start: 20110603, end: 20110605
  2. PERDIPINE [Concomitant]
     Indication: HYPERTENSION
     Dosage: 2ML/H
     Route: 042
     Dates: start: 20110603, end: 20110605
  3. PENTAZOCINE LACTATE [Concomitant]
     Route: 042
     Dates: start: 20110609, end: 20110609
  4. ATARAX [Concomitant]
     Indication: PAIN
     Route: 048
     Dates: start: 20110609, end: 20110609
  5. ENOXAPARIN SODIUM [Suspect]
     Indication: CAESAREAN SECTION
     Route: 058
     Dates: start: 20110606, end: 20110609
  6. FLUMARIN [Concomitant]
     Indication: INFECTION PROPHYLAXIS
     Route: 042
     Dates: start: 20110606, end: 20110609
  7. ATARAX [Concomitant]
     Route: 048
     Dates: start: 20110610
  8. PENTAZOCINE LACTATE [Concomitant]
     Indication: PAIN
     Route: 042
     Dates: start: 20110607
  9. FLURBIPROFEN [Concomitant]
     Indication: PAIN
     Route: 042
     Dates: start: 20110606
  10. MAGNESIUM SULFATE [Concomitant]
     Dosage: 0.8G/H
     Route: 042
     Dates: start: 20110605, end: 20110606
  11. MAGNESIUM SULFATE [Concomitant]
     Dosage: 0.7G/H
     Route: 042
     Dates: start: 20110606, end: 20110608
  12. ENOXAPARIN SODIUM [Suspect]
     Route: 058
     Dates: start: 20110606, end: 20110609
  13. PERDIPINE [Concomitant]
     Dosage: 5ML/H
     Route: 042
     Dates: start: 20110605, end: 20110606
  14. ANTITHROMBIN III [Concomitant]
     Dosage: DOSE:3000 UNIT(S)
     Route: 042
     Dates: start: 20110606
  15. PENTAZOCINE LACTATE [Concomitant]
     Route: 042
     Dates: start: 20110610

REACTIONS (5)
  - EXTRADURAL HAEMATOMA [None]
  - DYSURIA [None]
  - BACK PAIN [None]
  - MONOPLEGIA [None]
  - HYPOAESTHESIA [None]
